FAERS Safety Report 8222699-4 (Version None)
Quarter: 2012Q1

REPORT INFORMATION
  Report Type: 
  Country: None (occurrence: None)
  Receive Date: 20120320
  Receipt Date: 20120308
  Transmission Date: 20120608
  Serious: Yes (Hospitalization)
  Sender: FDA-Public Use
  Company Number: DE-ELI_LILLY_AND_COMPANY-DE201203002140

PATIENT
  Sex: Female

DRUGS (2)
  1. INSULIN [Concomitant]
  2. FORTEO [Suspect]
     Indication: OSTEOPOROSIS
     Dosage: UNK, QD
     Route: 058
     Dates: start: 20111201

REACTIONS (5)
  - CARDIAC PACEMAKER INSERTION [None]
  - STENT PLACEMENT [None]
  - CATHETERISATION CARDIAC [None]
  - RESPIRATORY DISORDER [None]
  - DEVICE OCCLUSION [None]
